FAERS Safety Report 7096017-1 (Version None)
Quarter: 2010Q4

REPORT INFORMATION
  Report Type: 
  Country: None (occurrence: None)
  Receive Date: 20101111
  Receipt Date: 20100924
  Transmission Date: 20110411
  Serious: No
  Sender: FDA-Public Use
  Company Number: US-BAYER-201021783BCC

PATIENT
  Sex: Female

DRUGS (1)
  1. ALEVE (CAPLET) [Suspect]
     Indication: MENSTRUAL DISORDER
     Dosage: TOOK 11000MG OF ALEVE IN TWO DAYS / COUNT BOTTLE UNKNOWN
     Route: 048

REACTIONS (1)
  - NO ADVERSE EVENT [None]
